FAERS Safety Report 14598598 (Version 1)
Quarter: 2018Q1

REPORT INFORMATION
  Report Type: Spontaneous
  Country: US (occurrence: US)
  Receive Date: 20180305
  Receipt Date: 20180305
  Transmission Date: 20180509
  Serious: Yes (Life-Threatening)
  Sender: FDA-Public Use
  Company Number: US-BIOGEN-2018BI00532131

PATIENT

DRUGS (1)
  1. TECFIDERA [Suspect]
     Active Substance: DIMETHYL FUMARATE
     Indication: PRODUCT USED FOR UNKNOWN INDICATION
     Route: 065
     Dates: start: 2017

REACTIONS (6)
  - Apparent death [Recovered/Resolved]
  - Hypertension [Unknown]
  - Cardio-respiratory arrest [Recovered/Resolved]
  - Liver injury [Unknown]
  - Cardiomyopathy [Unknown]
  - Renal failure [Unknown]
